FAERS Safety Report 23950702 (Version 1)
Quarter: 2024Q2

REPORT INFORMATION
  Report Type: Report from Study
  Country: US (occurrence: US)
  Receive Date: 20240607
  Receipt Date: 20240607
  Transmission Date: 20240715
  Serious: No
  Sender: FDA-Public Use
  Company Number: US-SPRINGWORKS THERAPEUTICS-SW-001392

PATIENT
  Age: 37 Year
  Sex: Female
  Weight: 111.58 kg

DRUGS (3)
  1. NIROGACESTAT [Suspect]
     Active Substance: NIROGACESTAT
     Indication: Product used for unknown indication
     Dosage: 150 MILLIGRAM, BID
     Dates: start: 20240218
  2. NIROGACESTAT [Suspect]
     Active Substance: NIROGACESTAT
     Dosage: 100 MILLIGRAM, BID
     Route: 048
  3. NIROGACESTAT [Suspect]
     Active Substance: NIROGACESTAT
     Dosage: 50 MILLIGRAM, BID
     Route: 048
     Dates: start: 20240311

REACTIONS (8)
  - Vomiting [Not Recovered/Not Resolved]
  - Lip dry [Recovering/Resolving]
  - Dry skin [Not Recovered/Not Resolved]
  - Rash maculo-papular [Not Recovered/Not Resolved]
  - Nausea [Not Recovered/Not Resolved]
  - Fatigue [Unknown]
  - Blood phosphorus decreased [Not Recovered/Not Resolved]
  - Intentional underdose [Unknown]

NARRATIVE: CASE EVENT DATE: 20240311
